FAERS Safety Report 8235124-4 (Version None)
Quarter: 2012Q1

REPORT INFORMATION
  Report Type: 
  Country: None (occurrence: None)
  Receive Date: 20120326
  Receipt Date: 20120314
  Transmission Date: 20120608
  Serious: Yes (Other)
  Sender: FDA-Public Use
  Company Number: US-MERCK-1203USA01874

PATIENT
  Age: 85 Year
  Sex: Female

DRUGS (21)
  1. ZETIA [Suspect]
     Route: 048
  2. ANUSOL (BISMUTH SUBGALLATE (+) PRAMOXINE HYDROCHLORIDE) [Concomitant]
     Route: 065
  3. CALCIUM (UNSPECIFIED) [Concomitant]
     Route: 065
  4. PLAQUENIL [Concomitant]
     Route: 065
  5. LYRICA [Suspect]
     Route: 065
  6. AVAPRO [Concomitant]
     Route: 065
  7. VITAMIN B COMPLEX [Concomitant]
     Route: 065
  8. CHOLECALCIFEROL [Concomitant]
     Route: 065
  9. MAXZIDE [Concomitant]
     Route: 065
  10. MACROBID (CLARITHROMYCIN) [Concomitant]
     Route: 065
  11. LYRICA [Suspect]
     Route: 065
  12. VITAMINS (UNSPECIFIED) [Concomitant]
     Route: 065
  13. ZOLOFT [Suspect]
     Route: 065
  14. CALAN [Suspect]
     Route: 065
  15. BYSTOLIC [Concomitant]
     Route: 065
  16. XANAX [Suspect]
     Route: 065
  17. SYNCOL [Concomitant]
     Indication: MUSCLE SPASMS
     Route: 065
  18. COUMADIN [Concomitant]
     Route: 065
  19. ALLEGRA [Concomitant]
     Route: 065
  20. ASCORBIC ACID [Concomitant]
     Route: 065
  21. ANTIVERT [Suspect]
     Route: 065

REACTIONS (4)
  - HYPERSENSITIVITY [None]
  - CARDIAC DISORDER [None]
  - NEPHROLITHIASIS [None]
  - URTICARIA CHRONIC [None]
